FAERS Safety Report 7690571-4 (Version None)
Quarter: 2011Q3

REPORT INFORMATION
  Report Type: 
  Country: None (occurrence: None)
  Receive Date: 20110812
  Receipt Date: 20110728
  Transmission Date: 20111222
  Serious: No
  Sender: FDA-Public Use
  Company Number: TCI2011A04249

PATIENT
  Sex: Male

DRUGS (5)
  1. ASPIRIN [Concomitant]
  2. LIPITOR [Concomitant]
  3. TANATRIL (IMIDAPRIL HYDROCHLORIDE) [Concomitant]
  4. AMARYL [Concomitant]
  5. ACTOS [Suspect]
     Indication: DIABETES MELLITUS
     Dosage: 15 MG (15 MG,1 D) PER ORAL
     Route: 048
     Dates: end: 20110601

REACTIONS (2)
  - BLADDER NEOPLASM [None]
  - HAEMATURIA [None]
